FAERS Safety Report 15344343 (Version 1)
Quarter: 2018Q3

REPORT INFORMATION
  Report Type: Spontaneous
  Country: US (occurrence: US)
  Receive Date: 20180903
  Receipt Date: 20180903
  Transmission Date: 20181010
  Serious: Yes (Other)
  Sender: FDA-Public Use
  Company Number: US-SA-2017SA254424

PATIENT
  Age: 69 Year
  Sex: Female
  Weight: 75.3 kg

DRUGS (14)
  1. TAXOTERE [Suspect]
     Active Substance: DOCETAXEL
     Indication: BREAST CANCER FEMALE
     Dosage: 140 MG, Q3W
     Route: 042
     Dates: start: 20110914, end: 20110914
  2. FOLIC ACID. [Concomitant]
     Active Substance: FOLIC ACID
     Dosage: UNK, UNK
     Route: 065
     Dates: start: 20010101
  3. PRILOSEC [OMEPRAZOLE MAGNESIUM] [Concomitant]
     Dosage: UNK, UNK
     Route: 065
  4. HERCEPTIN [Concomitant]
     Active Substance: TRASTUZUMAB
     Dosage: UNK, UNK
     Route: 065
  5. FISH OIL [Concomitant]
     Active Substance: FISH OIL
     Dosage: UNK, UNK
     Route: 065
     Dates: start: 20010101
  6. PARAPLATIN [Concomitant]
     Active Substance: CARBOPLATIN
     Dosage: UNK, UNK
     Route: 065
  7. BUPROPION HCL [Concomitant]
     Active Substance: BUPROPION HYDROCHLORIDE
     Dosage: UNK, UNK
     Route: 065
     Dates: start: 20010101
  8. ZOFRAN [ONDANSETRON HYDROCHLORIDE] [Concomitant]
     Dosage: UNK, UNK
     Route: 065
  9. RESVERATROL [Concomitant]
     Active Substance: DIETARY SUPPLEMENT\RESVERATROL
     Dosage: UNK, UNK
     Route: 065
     Dates: start: 20010101
  10. VITAMIN D [COLECALCIFEROL] [Concomitant]
     Dosage: UNK
     Dates: start: 20010101
  11. TAXOTERE [Suspect]
     Active Substance: DOCETAXEL
     Dosage: 140 MG, Q3W
     Route: 042
     Dates: start: 20111228, end: 20111228
  12. CELEXA [CELECOXIB] [Concomitant]
     Dosage: UNK, UNK
     Route: 065
     Dates: start: 20000101
  13. ACAI [EUTERPE OLERACEA] [Concomitant]
     Dosage: UNK, UNK
     Route: 065
     Dates: start: 20010101
  14. VITAMIN C [ASCORBIC ACID] [Concomitant]
     Route: 065

REACTIONS (2)
  - Psychological trauma [Unknown]
  - Alopecia [Not Recovered/Not Resolved]

NARRATIVE: CASE EVENT DATE: 20120628
